FAERS Safety Report 13177006 (Version 1)
Quarter: 2017Q1

REPORT INFORMATION
  Report Type: Report from Study
  Country: US (occurrence: US)
  Receive Date: 20170201
  Receipt Date: 20170201
  Transmission Date: 20170428
  Serious: No
  Sender: FDA-Public Use
  Company Number: US-EXELIXIS-CABO-16006875

PATIENT
  Sex: Male
  Weight: 64 kg

DRUGS (5)
  1. IBUPROFEN. [Concomitant]
     Active Substance: IBUPROFEN
  2. CALCITROL [Concomitant]
     Active Substance: CALCITRIOL
  3. COMETRIQ [Suspect]
     Active Substance: CABOZANTINIB S-MALATE
     Indication: THYROID CANCER
     Dosage: 140 MG, QD
     Route: 048
     Dates: start: 201608, end: 201608
  4. LEVOTHYROXINE. [Concomitant]
     Active Substance: LEVOTHYROXINE
  5. PRILOSEC [Concomitant]
     Active Substance: OMEPRAZOLE MAGNESIUM

REACTIONS (5)
  - Wound complication [Not Recovered/Not Resolved]
  - Skin ulcer [Unknown]
  - Stomatitis [Unknown]
  - Incorrect route of drug administration [Unknown]
  - Wound haemorrhage [Not Recovered/Not Resolved]
